FAERS Safety Report 10922758 (Version 1)
Quarter: 2015Q1

REPORT INFORMATION
  Report Type: Spontaneous
  Country: DE (occurrence: DE)
  Receive Date: 20150317
  Receipt Date: 20150317
  Transmission Date: 20150721
  Serious: Yes (Other)
  Sender: FDA-Public Use
  Company Number: DE-ABBVIE-15P-062-1359000-00

PATIENT
  Age: 39 Year
  Sex: Male

DRUGS (1)
  1. TESTOSTERONE. [Suspect]
     Active Substance: TESTOSTERONE
     Indication: PRODUCT USED FOR UNKNOWN INDICATION
     Route: 065

REACTIONS (5)
  - Left ventricular hypertrophy [Unknown]
  - Dyspnoea exertional [Unknown]
  - Myocardial fibrosis [Unknown]
  - Drug abuse [Unknown]
  - Fatigue [Unknown]
